FAERS Safety Report 22293623 (Version 1)
Quarter: 2023Q2

REPORT INFORMATION
  Report Type: Spontaneous
  Country: CN (occurrence: CN)
  Receive Date: 20230508
  Receipt Date: 20230508
  Transmission Date: 20230722
  Serious: Yes (Other)
  Sender: FDA-Public Use
  Company Number: CN-AstraZeneca-2023A097435

PATIENT
  Age: 47 Year
  Sex: Male

DRUGS (4)
  1. METOPROLOL SUCCINATE [Suspect]
     Active Substance: METOPROLOL SUCCINATE
     Indication: Hyperthyroidism
     Route: 048
     Dates: start: 20230329, end: 20230414
  2. BICYCLOL [Suspect]
     Active Substance: BICYCLOL
     Indication: Liver injury
     Dates: start: 20230329, end: 20230414
  3. LECITHIN, SOYBEAN [Suspect]
     Active Substance: LECITHIN, SOYBEAN
     Indication: Liver injury
     Route: 048
     Dates: start: 20230329, end: 20230414
  4. METHIMAZOLE [Suspect]
     Active Substance: METHIMAZOLE
     Indication: Hyperthyroidism
     Dates: start: 20230329, end: 20230411

REACTIONS (1)
  - Drug eruption [Recovering/Resolving]

NARRATIVE: CASE EVENT DATE: 20230417
